FAERS Safety Report 9969596 (Version 2)
Quarter: 2015Q1

REPORT INFORMATION
  Report Type: Report from Study
  Country: DE (occurrence: DE)
  Receive Date: 20140306
  Receipt Date: 20150324
  Transmission Date: 20150721
  Serious: Yes (Hospitalization, Other)
  Sender: FDA-Public Use
  Company Number: DE-ROCHE-1356245

PATIENT
  Age: 71 Year
  Sex: Female

DRUGS (15)
  1. LEFLUNOMID [Suspect]
     Active Substance: LEFLUNOMIDE
     Indication: PRODUCT USED FOR UNKNOWN INDICATION
     Route: 065
     Dates: start: 20100223
  2. LEFLUNOMID [Suspect]
     Active Substance: LEFLUNOMIDE
     Route: 065
     Dates: start: 20100823
  3. LEFLUNOMID [Suspect]
     Active Substance: LEFLUNOMIDE
     Route: 065
     Dates: start: 20120525
  4. METHOTREXATE (METHOTREXATE SODIUM) [Suspect]
     Active Substance: METHOTREXATE SODIUM
     Route: 065
     Dates: start: 20120906
  5. LEFLUNOMID [Suspect]
     Active Substance: LEFLUNOMIDE
     Route: 065
     Dates: start: 20100415
  6. LEFLUNOMID [Suspect]
     Active Substance: LEFLUNOMIDE
     Route: 065
     Dates: start: 20110224
  7. RITUXIMAB [Suspect]
     Active Substance: RITUXIMAB
     Route: 065
     Dates: start: 20110301
  8. LEFLUNOMID [Suspect]
     Active Substance: LEFLUNOMIDE
     Route: 065
     Dates: start: 20130219
  9. LEFLUNOMID [Suspect]
     Active Substance: LEFLUNOMIDE
     Route: 065
     Dates: start: 20130926
  10. HYDROXYCHLOROQUINE [Suspect]
     Active Substance: HYDROXYCHLOROQUINE
     Indication: PRODUCT USED FOR UNKNOWN INDICATION
     Route: 065
     Dates: start: 20130926, end: 20130926
  11. LEFLUNOMID [Suspect]
     Active Substance: LEFLUNOMIDE
     Route: 065
     Dates: start: 20110922
  12. LEFLUNOMID [Suspect]
     Active Substance: LEFLUNOMIDE
     Route: 065
     Dates: start: 20120906
  13. METHOTREXATE (METHOTREXATE SODIUM) [Suspect]
     Active Substance: METHOTREXATE SODIUM
     Route: 065
     Dates: start: 20130219
  14. METHOTREXATE (METHOTREXATE SODIUM) [Suspect]
     Active Substance: METHOTREXATE SODIUM
     Indication: PRODUCT USED FOR UNKNOWN INDICATION
     Dosage: 19/FEB/2013
     Route: 065
     Dates: start: 20120522
  15. RITUXIMAB [Suspect]
     Active Substance: RITUXIMAB
     Indication: RHEUMATOID ARTHRITIS
     Route: 065
     Dates: start: 20100223

REACTIONS (3)
  - Pneumonia [Unknown]
  - Epistaxis [Unknown]
  - Angiopathy [Unknown]

NARRATIVE: CASE EVENT DATE: 20130203
